FAERS Safety Report 5902013-7 (Version None)
Quarter: 2008Q3

REPORT INFORMATION
  Report Type: 
  Country: None (occurrence: None)
  Receive Date: 20080929
  Receipt Date: 20080918
  Transmission Date: 20090109
  Serious: Yes (Hospitalization)
  Sender: FDA-Public Use
  Company Number: US-JNJFOC-20080905635

PATIENT
  Sex: Female
  Weight: 82.56 kg

DRUGS (4)
  1. ORTHO EVRA [Suspect]
     Indication: MENOPAUSE
  2. ORTHO EVRA [Suspect]
     Indication: CONTRACEPTION
  3. ORTHO EVRA [Suspect]
     Indication: MENORRHAGIA
  4. AUGMENTIN '125' [Concomitant]

REACTIONS (5)
  - CELLULITIS [None]
  - DEEP VEIN THROMBOSIS [None]
  - OFF LABEL USE [None]
  - THERAPEUTIC RESPONSE UNEXPECTED [None]
  - THROMBOPHLEBITIS SUPERFICIAL [None]
